FAERS Safety Report 13148217 (Version 2)
Quarter: 2017Q1

REPORT INFORMATION
  Report Type: Report from Study
  Country: CN (occurrence: CN)
  Receive Date: 20170125
  Receipt Date: 20170125
  Transmission Date: 20170428
  Serious: Yes (Hospitalization)
  Sender: FDA-Public Use
  Company Number: CN-BAUSCH-BL-2017-001205

PATIENT
  Age: 67 Year
  Sex: Male
  Weight: 65.06 kg

DRUGS (2)
  1. VISUDYNE [Suspect]
     Active Substance: VERTEPORFIN
     Route: 050
     Dates: start: 20150311, end: 20150311
  2. VISUDYNE [Suspect]
     Active Substance: VERTEPORFIN
     Indication: VISUAL IMPAIRMENT
     Route: 050
     Dates: start: 20141015, end: 20141015

REACTIONS (3)
  - Coronary artery disease [Recovered/Resolved]
  - Syncope [Recovered/Resolved]
  - Syncope [None]

NARRATIVE: CASE EVENT DATE: 20150425
